FAERS Safety Report 10904222 (Version 1)
Quarter: 2015Q1

REPORT INFORMATION
  Report Type: Spontaneous
  Country: US (occurrence: None)
  Receive Date: 20150303
  Receipt Date: 20150303
  Transmission Date: 20150721
  Serious: No
  Sender: FDA-Public Use
  Company Number: None

PATIENT
  Age: 64 Year
  Sex: Male
  Weight: 126.55 kg

DRUGS (16)
  1. ATORVASTATIN [Concomitant]
     Active Substance: ATORVASTATIN
  2. DULOXETINE HCL [Suspect]
     Active Substance: DULOXETINE HYDROCHLORIDE
     Indication: TREMOR
     Route: 048
  3. HUMULIN R [Concomitant]
     Active Substance: INSULIN HUMAN
  4. METFORMIN [Concomitant]
     Active Substance: METFORMIN HYDROCHLORIDE
  5. MULTIVITAMIN [Concomitant]
     Active Substance: VITAMINS
  6. HYDROCODONE [Concomitant]
     Active Substance: HYDROCODONE
  7. ASPIRIN. [Concomitant]
     Active Substance: ASPIRIN
  8. FLUTICASONE HUMALOG [Concomitant]
  9. ER TOPIRAMATE [Concomitant]
  10. PRILOSEC [Concomitant]
     Active Substance: OMEPRAZOLE MAGNESIUM
  11. DULOXETINE [Concomitant]
     Active Substance: DULOXETINE
  12. APAP LASIX [Concomitant]
  13. LIDOCAINE PATCH [Concomitant]
     Active Substance: LIDOCAINE
  14. FLUTICASONE [Concomitant]
     Active Substance: FLUTICASONE\FLUTICASONE PROPIONATE
  15. METOLAZONE. [Concomitant]
     Active Substance: METOLAZONE
  16. POTASSIUM CL [Concomitant]
     Active Substance: POTASSIUM CHLORIDE

REACTIONS (2)
  - Product quality issue [None]
  - Drug ineffective [None]

NARRATIVE: CASE EVENT DATE: 20150302
